FAERS Safety Report 6062606-6 (Version None)
Quarter: 2009Q1

REPORT INFORMATION
  Report Type: 
  Country: None (occurrence: None)
  Receive Date: 20090203
  Receipt Date: 20081222
  Transmission Date: 20090719
  Serious: Yes (Hospitalization)
  Sender: FDA-Public Use
  Company Number: SK-PFIZER INC-2009151233

PATIENT

DRUGS (3)
  1. DALACIN [Suspect]
     Indication: UTERINE DISORDER
     Dosage: UNK
     Route: 048
     Dates: start: 20081114, end: 20081125
  2. DRUG, UNSPECIFIED [Concomitant]
  3. MAGNESIUM [Concomitant]

REACTIONS (2)
  - ERYTHEMA [None]
  - TOXIC SKIN ERUPTION [None]
